FAERS Safety Report 8564885-X (Version None)
Quarter: 2012Q3

REPORT INFORMATION
  Report Type: 
  Country: None (occurrence: None)
  Receive Date: 20120803
  Receipt Date: 20120726
  Transmission Date: 20120928
  Serious: Yes (Other)
  Sender: FDA-Public Use
  Company Number: GB-SANOFI-AVENTIS-2012SA053576

PATIENT
  Age: 40 Year
  Sex: Female
  Weight: 90 kg

DRUGS (8)
  1. DIFFLAM [Concomitant]
     Dates: start: 20111028
  2. NAPROXEN [Concomitant]
     Dates: start: 20120423, end: 20120712
  3. BALNEUM [Concomitant]
     Dates: start: 20110503
  4. DIAZEPAM [Concomitant]
     Dates: start: 20120620
  5. POLYURETHANE [Concomitant]
     Dates: start: 20120706
  6. ZOLPIDEM [Suspect]
     Dosage: AT NIGHT
     Route: 065
     Dates: start: 20120620
  7. FLUOXETINE HCL [Concomitant]
     Dates: start: 20120328, end: 20120523
  8. SERTRALINE HYDROCHLORIDE [Concomitant]
     Dates: start: 20120521

REACTIONS (7)
  - ALTERED STATE OF CONSCIOUSNESS [None]
  - DYSPRAXIA [None]
  - CONFUSIONAL STATE [None]
  - AMNESIA [None]
  - MOTOR DYSFUNCTION [None]
  - NAUSEA [None]
  - HALLUCINATION [None]
